FAERS Safety Report 6743643-2 (Version None)
Quarter: 2010Q2

REPORT INFORMATION
  Report Type: 
  Country: None (occurrence: None)
  Receive Date: 20100526
  Receipt Date: 20100526
  Transmission Date: 20101027
  Serious: No
  Sender: FDA-Public Use
  Company Number: None

PATIENT
  Sex: Male

DRUGS (2)
  1. LISINOPRIL [Suspect]
     Indication: HYPERTENSION
     Dosage: 5 MG 1QDAY ORALLY
     Route: 048
     Dates: start: 20090717
  2. LISINOPRIL [Suspect]
     Indication: HYPERTENSION
     Dosage: 5 MG 1QDAY ORALLY
     Route: 048
     Dates: start: 20100419

REACTIONS (1)
  - COUGH [None]
